FAERS Safety Report 13818043 (Version 2)
Quarter: 2017Q4

REPORT INFORMATION
  Report Type: Spontaneous
  Country: US (occurrence: US)
  Receive Date: 20170731
  Receipt Date: 20171108
  Transmission Date: 20180320
  Serious: Yes (Hospitalization)
  Sender: FDA-Public Use
  Company Number: US-LUNDBECK-DKLU2034870

PATIENT
  Age: 45 Year
  Sex: Female

DRUGS (2)
  1. NORTHERA [Suspect]
     Active Substance: DROXIDOPA
     Indication: NEURODEGENERATIVE DISORDER
     Dosage: TITRATION COMPLETE
     Route: 048
     Dates: start: 20170318
  2. NORTHERA [Suspect]
     Active Substance: DROXIDOPA
     Indication: RILEY-DAY SYNDROME
     Route: 048

REACTIONS (9)
  - Loss of consciousness [Unknown]
  - Hypotension [Unknown]
  - Condition aggravated [Unknown]
  - Hypothyroidism [Unknown]
  - Dizziness [Unknown]
  - Syncope [Unknown]
  - Off label use [Not Recovered/Not Resolved]
  - Cardiac pacemaker insertion [Unknown]
  - Autonomic nervous system imbalance [Unknown]

NARRATIVE: CASE EVENT DATE: 201707
